FAERS Safety Report 9271604 (Version 1)
Quarter: 2013Q2

REPORT INFORMATION
  Report Type: Spontaneous
  Country: CN (occurrence: CN)
  Receive Date: 20130506
  Receipt Date: 20130506
  Transmission Date: 20140414
  Serious: Yes (Death, Hospitalization, Other)
  Sender: FDA-Public Use
  Company Number: CN-ASTELLAS-2013JP005608

PATIENT
  Age: 49 Year
  Sex: Female

DRUGS (1)
  1. TACROLIMUS [Suspect]
     Indication: PROPHYLAXIS AGAINST TRANSPLANT REJECTION
     Route: 065

REACTIONS (3)
  - Pulmonary embolism [Fatal]
  - Posterior reversible encephalopathy syndrome [Unknown]
  - Right ventricular failure [Fatal]
